FAERS Safety Report 17714409 (Version 1)
Quarter: 2020Q2

REPORT INFORMATION
  Report Type: Report from Study
  Country: US (occurrence: US)
  Receive Date: 20200427
  Receipt Date: 20200427
  Transmission Date: 20200714
  Serious: Yes (Other)
  Sender: FDA-Public Use
  Company Number: US-PFIZER INC-2019496630

PATIENT
  Age: 68 Year
  Sex: Female

DRUGS (2)
  1. IBRANCE [Suspect]
     Active Substance: PALBOCICLIB
     Indication: BREAST CANCER FEMALE
     Dosage: 125 MG, CYCLIC (DAILY, 21 DAYS ON, 7 DAYS OFF)
     Route: 048
     Dates: start: 20191104
  2. FASLODEX [Suspect]
     Active Substance: FULVESTRANT
     Dosage: UNK
     Route: 030

REACTIONS (26)
  - Cough [Recovering/Resolving]
  - Oedema peripheral [Unknown]
  - Chills [Recovering/Resolving]
  - Laryngitis [Recovering/Resolving]
  - Fatigue [Unknown]
  - Hand fracture [Unknown]
  - Inappropriate schedule of product administration [Unknown]
  - Constipation [Unknown]
  - Gastrointestinal disorder [Unknown]
  - Pancreatic disorder [Unknown]
  - Contusion [Recovering/Resolving]
  - White blood cell count decreased [Unknown]
  - Eye haemorrhage [Unknown]
  - Rhinorrhoea [Recovering/Resolving]
  - Tinnitus [Recovered/Resolved]
  - Eye pain [Unknown]
  - Eye pruritus [Unknown]
  - Dizziness [Recovered/Resolved]
  - Vitamin B12 abnormal [Unknown]
  - Abnormal faeces [Not Recovered/Not Resolved]
  - Vulvovaginal discomfort [Unknown]
  - Flatulence [Unknown]
  - Lacrimation increased [Recovering/Resolving]
  - Condition aggravated [Recovering/Resolving]
  - Fall [Unknown]
  - Crepitations [Unknown]

NARRATIVE: CASE EVENT DATE: 201911
